FAERS Safety Report 8027275-4 (Version None)
Quarter: 2012Q1

REPORT INFORMATION
  Report Type: 
  Country: None (occurrence: None)
  Receive Date: 20120106
  Receipt Date: 20120104
  Transmission Date: 20120608
  Serious: No
  Sender: FDA-Public Use
  Company Number: US-TEVA-316020USA

PATIENT
  Sex: Male
  Weight: 68.1 kg

DRUGS (4)
  1. AZILECT [Suspect]
     Indication: PARKINSON'S DISEASE
     Dosage: 1 MILLIGRAM;
     Route: 048
     Dates: start: 20111204, end: 20120104
  2. LOVASTATIN [Concomitant]
  3. VITAMIN TAB [Concomitant]
  4. LEVODOPA [Concomitant]

REACTIONS (1)
  - SOMNOLENCE [None]
